FAERS Safety Report 10305555 (Version 1)
Quarter: 2014Q3

REPORT INFORMATION
  Report Type: Spontaneous
  Country: US (occurrence: None)
  Receive Date: 20140714
  Receipt Date: 20140714
  Transmission Date: 20150326
  Serious: Yes (Death)
  Sender: FDA-Public Use
  Company Number: None

PATIENT
  Age: 63 Year
  Sex: Male
  Weight: 75.7 kg

DRUGS (5)
  1. LISINOPRIL. [Concomitant]
     Active Substance: LISINOPRIL
  2. ALLOPURINOL. [Suspect]
     Active Substance: ALLOPURINOL
     Indication: GOUT
     Route: 048
     Dates: start: 20140115, end: 20140217
  3. PREDNISONE. [Concomitant]
     Active Substance: PREDNISONE
  4. SIMVASTATIN. [Concomitant]
     Active Substance: SIMVASTATIN
  5. ALLOPURINOL. [Suspect]
     Active Substance: ALLOPURINOL
     Indication: PROPHYLAXIS
     Route: 048
     Dates: start: 20140115, end: 20140217

REACTIONS (15)
  - Renal failure acute [None]
  - Hyperkalaemia [None]
  - Confusional state [None]
  - Acidosis [None]
  - Asthenia [None]
  - Systemic candida [None]
  - Acute hepatic failure [None]
  - Flushing [None]
  - Pancreatitis acute [None]
  - Pancytopenia [None]
  - Endocarditis [None]
  - Pain [None]
  - Disorientation [None]
  - Drug reaction with eosinophilia and systemic symptoms [None]
  - Multi-organ failure [None]

NARRATIVE: CASE EVENT DATE: 20140212
